FAERS Safety Report 17021170 (Version 1)
Quarter: 2019Q4

REPORT INFORMATION
  Report Type: Spontaneous
  Country: US (occurrence: US)
  Receive Date: 20191111
  Receipt Date: 20191111
  Transmission Date: 20200122
  Serious: Yes (Life-Threatening, Disabling, Other)
  Sender: FDA-Public Use
  Company Number: None

PATIENT
  Age: 32 Year
  Sex: Female
  Weight: 47.7 kg

DRUGS (1)
  1. SKYLA [Suspect]
     Active Substance: LEVONORGESTREL
     Indication: CONTRACEPTION
     Dosage: ?          QUANTITY:1 DEVICE IMPLANT;?
     Dates: start: 20180301, end: 20190715

REACTIONS (3)
  - Adverse drug reaction [None]
  - Irritable bowel syndrome [None]
  - Depression [None]

NARRATIVE: CASE EVENT DATE: 20190601
